FAERS Safety Report 12635149 (Version 3)
Quarter: 2016Q4

REPORT INFORMATION
  Report Type: Spontaneous
  Country: JP (occurrence: JP)
  Receive Date: 20160809
  Receipt Date: 20161031
  Transmission Date: 20170207
  Serious: Yes (Other)
  Sender: FDA-Public Use
  Company Number: ALJP2016JP001093

PATIENT
  Age: 73 Year
  Sex: Male

DRUGS (1)
  1. BSS PLUS [Suspect]
     Active Substance: CALCIUM CHLORIDE\DEXTROSE\MAGNESIUM CHLORIDE\OXIGLUTATIONE\POTASSIUM CHLORIDE\SODIUM BICARBONATE\SODIUM CHLORIDE\SODIUM PHOSPHATE\SODIUM PHOSPHATE, DIBASIC
     Indication: CATARACT OPERATION
     Dosage: UNK
     Route: 031

REACTIONS (2)
  - Corneal endothelial cell loss [Recovering/Resolving]
  - Incorrect product storage [Unknown]

NARRATIVE: CASE EVENT DATE: 20160412
